FAERS Safety Report 16934506 (Version 2)
Quarter: 2020Q3

REPORT INFORMATION
  Report Type: Spontaneous
  Country: IE (occurrence: IE)
  Receive Date: 20191018
  Receipt Date: 20200807
  Transmission Date: 20201105
  Serious: Yes (Other)
  Sender: FDA-Public Use
  Company Number: NVSC2019IE002143

PATIENT
  Age: 26 Year
  Sex: Female

DRUGS (1)
  1. FINGOLIMOD. [Suspect]
     Active Substance: FINGOLIMOD
     Indication: RELAPSING-REMITTING MULTIPLE SCLEROSIS
     Dosage: UNK
     Route: 065

REACTIONS (5)
  - Normal newborn [Unknown]
  - Paraparesis [Unknown]
  - Maternal exposure during pregnancy [Unknown]
  - Ataxia [Unknown]
  - Multiple sclerosis relapse [Unknown]
